FAERS Safety Report 19082681 (Version 3)
Quarter: 2021Q2

REPORT INFORMATION
  Report Type: Report from Study
  Country: US (occurrence: US)
  Receive Date: 20210401
  Receipt Date: 20210617
  Transmission Date: 20210717
  Serious: Yes (Other)
  Sender: FDA-Public Use
  Company Number: NVSC2021US070195

PATIENT
  Sex: Female

DRUGS (1)
  1. COSENTYX [Suspect]
     Active Substance: SECUKINUMAB
     Indication: PSORIATIC ARTHROPATHY
     Dosage: UNK
     Route: 065

REACTIONS (5)
  - Hypersensitivity [Unknown]
  - Psoriatic arthropathy [Unknown]
  - Urticaria [Unknown]
  - Allergic reaction to excipient [Unknown]
  - Sinus disorder [Unknown]
